FAERS Safety Report 6196478-6 (Version None)
Quarter: 2009Q2

REPORT INFORMATION
  Report Type: 
  Country: None (occurrence: None)
  Receive Date: 20090520
  Receipt Date: 20090514
  Transmission Date: 20091009
  Serious: Yes (Life-Threatening, Other)
  Sender: FDA-Public Use
  Company Number: JP-JNJFOC-20090504185

PATIENT
  Age: 60 Year
  Sex: Female

DRUGS (8)
  1. TOPINA [Suspect]
     Route: 048
  2. TOPINA [Suspect]
     Indication: EPILEPSY
     Dosage: 29-NOV-2009 REPORTER DIRECTED HER TO TAKE TOPIRAMATE 50MG/DAY EVERY SECOND DAY
     Route: 048
  3. LANDSEN [Concomitant]
     Indication: DRUG USE FOR UNKNOWN INDICATION
     Route: 048
  4. PLETAL [Concomitant]
     Route: 048
  5. ADALAT [Concomitant]
     Route: 048
  6. NU-LOTAN [Concomitant]
     Route: 048
  7. SELBEX [Concomitant]
     Dosage: 1 DF
  8. MAGLAX [Concomitant]

REACTIONS (7)
  - CARDIAC ARREST [None]
  - DYSGEUSIA [None]
  - GRAND MAL CONVULSION [None]
  - HYPOAESTHESIA [None]
  - MEMORY IMPAIRMENT [None]
  - PERSONALITY CHANGE [None]
  - WEIGHT DECREASED [None]
